FAERS Safety Report 9717422 (Version 1)
Quarter: 2013Q4

REPORT INFORMATION
  Report Type: Spontaneous
  Country: US (occurrence: US)
  Receive Date: 20131127
  Receipt Date: 20131127
  Transmission Date: 20140711
  Serious: No
  Sender: FDA-Public Use
  Company Number: US-GILEAD-2008-0019647

PATIENT
  Age: 68 Year
  Sex: Female
  Weight: 97.52 kg

DRUGS (10)
  1. LETAIRIS [Suspect]
     Indication: PULMONARY HYPERTENSION
     Route: 048
  2. REVATIO [Concomitant]
  3. DIOVAN HCT [Concomitant]
  4. BETAPACE [Concomitant]
  5. ATROVENT [Concomitant]
  6. GLYBURIDE [Concomitant]
  7. METFORMIN [Concomitant]
  8. K-DUR [Concomitant]
  9. NEXIUM [Concomitant]
  10. ZYRTEC [Concomitant]

REACTIONS (1)
  - Diarrhoea [None]
